FAERS Safety Report 25932325 (Version 1)
Quarter: 2025Q4

REPORT INFORMATION
  Report Type: Spontaneous
  Country: US (occurrence: US)
  Receive Date: 20251016
  Receipt Date: 20251016
  Transmission Date: 20260118
  Serious: No
  Sender: SANOFI AVENTIS
  Company Number: US-SA-2025SA308096

PATIENT
  Sex: Female
  Weight: 23.14 kg

DRUGS (2)
  1. DUPIXENT [Suspect]
     Active Substance: DUPILUMAB
     Indication: Dermatitis atopic
     Dosage: 300 MG, Q4W
     Route: 058
  2. ABREVA [Concomitant]
     Active Substance: DOCOSANOL
     Dosage: UNK

REACTIONS (3)
  - Perioral dermatitis [Unknown]
  - Skin fissures [Unknown]
  - Rash macular [Unknown]
